FAERS Safety Report 26180692 (Version 1)
Quarter: 2025Q4

REPORT INFORMATION
  Report Type: Spontaneous
  Country: US (occurrence: US)
  Receive Date: 20251219
  Receipt Date: 20251219
  Transmission Date: 20260118
  Serious: No
  Sender: BIOMARIN
  Company Number: US-BIOMARINAP-US-2025-170719

PATIENT
  Sex: Female

DRUGS (1)
  1. VOXZOGO [Suspect]
     Active Substance: VOSORITIDE
     Indication: Product used for unknown indication
     Dosage: 0.56 MILLIGRAM

REACTIONS (3)
  - Apnoea [Unknown]
  - Tonsillar hypertrophy [Unknown]
  - Adenoidal hypertrophy [Unknown]
